FAERS Safety Report 12003816 (Version 1)
Quarter: 2016Q1

REPORT INFORMATION
  Report Type: Spontaneous
  Country: US (occurrence: US)
  Receive Date: 20160204
  Receipt Date: 20160204
  Transmission Date: 20160526
  Serious: No
  Sender: FDA-Public Use
  Company Number: US-JNJFOC-20160112624

PATIENT
  Sex: Male

DRUGS (4)
  1. PREZISTA [Suspect]
     Active Substance: DARUNAVIR ETHANOLATE
     Indication: HIV INFECTION
     Route: 048
     Dates: start: 20160114
  2. PHENYTOIN. [Interacting]
     Active Substance: PHENYTOIN
     Indication: EPILEPSY
     Route: 065
  3. LAMIVUDINE. [Concomitant]
     Active Substance: LAMIVUDINE
     Indication: HIV INFECTION
     Route: 065
  4. RALTEGRAVIR. [Concomitant]
     Active Substance: RALTEGRAVIR
     Indication: HIV INFECTION
     Route: 065

REACTIONS (3)
  - Drug level below therapeutic [Unknown]
  - Drug interaction [Unknown]
  - Contraindicated drug administered [Unknown]
